FAERS Safety Report 10431549 (Version 1)
Quarter: 2014Q3

REPORT INFORMATION
  Report Type: Spontaneous
  Country: US (occurrence: None)
  Receive Date: 20140903
  Receipt Date: 20140903
  Transmission Date: 20150326
  Serious: Yes (Hospitalization, Other)
  Sender: FDA-Public Use
  Company Number: ADR-2014UNK131

PATIENT
  Age: 13 Year
  Sex: Male

DRUGS (2)
  1. SERTRALINE [Suspect]
     Active Substance: SERTRALINE HYDROCHLORIDE
     Indication: DEPRESSION
     Route: 048
  2. METHYLPHENIDATE [Concomitant]
     Active Substance: METHYLPHENIDATE

REACTIONS (14)
  - Respiratory distress [None]
  - Blood lactic acid increased [None]
  - Neck pain [None]
  - Renal failure acute [None]
  - Myalgia [None]
  - Pyrexia [None]
  - Myositis [None]
  - Asthenia [None]
  - Headache [None]
  - Dermatitis exfoliative [None]
  - Continuous haemodiafiltration [None]
  - Respiratory arrest [None]
  - Fatigue [None]
  - Rhabdomyolysis [None]
